FAERS Safety Report 8341682-1 (Version None)
Quarter: 2012Q2

REPORT INFORMATION
  Report Type: 
  Country: None (occurrence: None)
  Receive Date: 20120507
  Receipt Date: 20120503
  Transmission Date: 20120825
  Serious: Yes (Death)
  Sender: FDA-Public Use
  Company Number: CO-PFIZER INC-2012109817

PATIENT
  Sex: Female

DRUGS (2)
  1. OLMESARTAN MEDOXOMIL [Suspect]
     Dosage: 20 MG, ONCE DAILY
     Dates: start: 20071203
  2. LIPITOR [Suspect]
     Dosage: 20 MG, ONCE DAILY
     Route: 048
     Dates: start: 20071203

REACTIONS (1)
  - DEATH [None]
